FAERS Safety Report 25519245 (Version 1)
Quarter: 2025Q3

REPORT INFORMATION
  Report Type: Spontaneous
  Country: EU (occurrence: EU)
  Receive Date: 20250704
  Receipt Date: 20250704
  Transmission Date: 20251020
  Serious: Yes (Death, Other)
  Sender: CLINIGEN
  Company Number: EU-Clinigen Group PLC/ Clinigen Healthcare Ltd-NL-CLGN-23-00176

PATIENT

DRUGS (10)
  1. FOSCARNET SODIUM [Suspect]
     Active Substance: FOSCARNET SODIUM
     Indication: Oral herpes
     Route: 065
  2. ACYCLOVIR [Suspect]
     Active Substance: ACYCLOVIR
     Indication: Oral herpes
     Route: 065
  3. ACYCLOVIR [Suspect]
     Active Substance: ACYCLOVIR
     Indication: Oral herpes
  4. AMSACRINE [Suspect]
     Active Substance: AMSACRINE
     Indication: Chronic myelomonocytic leukaemia
     Route: 065
  5. THYMOCYTE IMMUNE GLOBULIN NOS [Suspect]
     Active Substance: THYMOCYTE IMMUNE GLOBULIN NOS
     Indication: Chronic myelomonocytic leukaemia
     Route: 065
  6. CYCLOPHOSPHAMIDE [Suspect]
     Active Substance: CYCLOPHOSPHAMIDE
     Indication: Chronic myelomonocytic leukaemia
     Route: 065
  7. CYTARABINE [Suspect]
     Active Substance: CYTARABINE
     Indication: Chronic myelomonocytic leukaemia
     Route: 065
  8. FLUDARABINE [Suspect]
     Active Substance: FLUDARABINE PHOSPHATE
     Indication: Chronic myelomonocytic leukaemia
     Route: 065
  9. PRITELIVIR [Suspect]
     Active Substance: PRITELIVIR
     Indication: Oral herpes
     Route: 065
  10. PRITELIVIR [Suspect]
     Active Substance: PRITELIVIR
     Indication: Oral herpes

REACTIONS (6)
  - Renal impairment [Fatal]
  - Off label use [Unknown]
  - Pneumonitis [Unknown]
  - Pulmonary toxicity [Unknown]
  - Respiratory failure [Unknown]
  - Drug resistance [Unknown]
